FAERS Safety Report 8207477-4 (Version None)
Quarter: 2012Q1

REPORT INFORMATION
  Report Type: 
  Country: None (occurrence: None)
  Receive Date: 20120313
  Receipt Date: 20120313
  Transmission Date: 20120608
  Serious: No
  Sender: FDA-Public Use
  Company Number: None

PATIENT
  Sex: Female
  Weight: 68.0396 kg

DRUGS (1)
  1. OLANZAPINE [Suspect]
     Indication: SCHIZOPHRENIA
     Dosage: 20 MG. BID ORAL
     Route: 048
     Dates: start: 20120228

REACTIONS (4)
  - PRODUCT SUBSTITUTION ISSUE [None]
  - NAUSEA [None]
  - MALAISE [None]
  - DIZZINESS [None]
